FAERS Safety Report 9005021 (Version 1)
Quarter: 2013Q1

REPORT INFORMATION
  Report Type: Spontaneous
  Country: US (occurrence: None)
  Receive Date: 20130107
  Receipt Date: 20130107
  Transmission Date: 20140127
  Serious: No
  Sender: FDA-Public Use
  Company Number: None

PATIENT
  Sex: 0

DRUGS (2)
  1. COMBIVENT [Suspect]
  2. ALBUTEROL SULFATE\IPRATROPIUM BROMIDE [Suspect]

REACTIONS (1)
  - Product quality issue [None]
